FAERS Safety Report 6982150-9 (Version None)
Quarter: 2010Q3

REPORT INFORMATION
  Report Type: 
  Country: None (occurrence: None)
  Receive Date: 20100914
  Receipt Date: 20091201
  Transmission Date: 20110219
  Serious: No
  Sender: FDA-Public Use
  Company Number: US-PFIZER INC-2009304921

PATIENT
  Sex: Female
  Weight: 87.528 kg

DRUGS (8)
  1. LYRICA [Suspect]
     Indication: NEUROPATHY PERIPHERAL
     Dosage: 50 MG, 1X/DAY
     Dates: start: 20091130
  2. LEVOTHYROXINE [Concomitant]
  3. FISH OIL [Concomitant]
  4. ARTHROTEC [Concomitant]
     Indication: BONE PAIN
  5. ZOLOFT [Concomitant]
     Indication: DEPRESSION
     Dosage: 50 MG, 1X/DAY
  6. ZOLOFT [Concomitant]
     Indication: ANXIETY
  7. ALPRAZOLAM [Concomitant]
  8. SIMVASTATIN [Concomitant]
     Indication: BLOOD CHOLESTEROL INCREASED
     Dosage: 10 MG, UNK

REACTIONS (3)
  - HEART RATE INCREASED [None]
  - MIDDLE INSOMNIA [None]
  - PARAESTHESIA [None]
